FAERS Safety Report 5123920-1 (Version None)
Quarter: 2006Q3

REPORT INFORMATION
  Report Type: 
  Country: None (occurrence: None)
  Receive Date: 20060811
  Receipt Date: 20060524
  Transmission Date: 20061208
  Serious: No
  Sender: FDA-Public Use
  Company Number: S06-USA-02071-01

PATIENT
  Age: 85 Year
  Sex: Female

DRUGS (2)
  1. NAMENDA [Suspect]
     Indication: AMNESIA
     Dosage: 5 MG QD PO
     Route: 048
     Dates: start: 20060519
  2. MULTIPLE MEDICATION (NOS) [Concomitant]

REACTIONS (1)
  - DIARRHOEA [None]
